FAERS Safety Report 19484550 (Version 1)
Quarter: 2021Q3

REPORT INFORMATION
  Report Type: Spontaneous
  Country: GB (occurrence: GB)
  Receive Date: 20210702
  Receipt Date: 20210702
  Transmission Date: 20211014
  Serious: Yes (Other)
  Sender: FDA-Public Use
  Company Number: GB-BEH-2021133341

PATIENT
  Age: 37 Year
  Sex: Female

DRUGS (1)
  1. ANTI?D IMMUNOGLOBULIN (INN) [Suspect]
     Active Substance: HUMAN RHO(D) IMMUNE GLOBULIN
     Indication: URTICARIA
     Route: 065

REACTIONS (15)
  - Off label use [Unknown]
  - Feeling hot [Unknown]
  - Influenza like illness [Recovering/Resolving]
  - Malaise [Recovering/Resolving]
  - Pruritus [Recovering/Resolving]
  - Fatigue [Recovered/Resolved]
  - Urticaria [Recovered/Resolved]
  - Scratch [Unknown]
  - Feeling abnormal [Unknown]
  - Headache [Recovered/Resolved]
  - Pruritus [Recovering/Resolving]
  - No adverse event [Unknown]
  - Acne [Unknown]
  - Abnormal sensation in eye [Unknown]
  - Migraine [Unknown]

NARRATIVE: CASE EVENT DATE: 20210506
